FAERS Safety Report 9474520 (Version 1)
Quarter: 2013Q3

REPORT INFORMATION
  Report Type: Spontaneous
  Country: US (occurrence: US)
  Receive Date: 20130823
  Receipt Date: 20130823
  Transmission Date: 20140515
  Serious: No
  Sender: FDA-Public Use
  Company Number: US-009507513-1308USA006943

PATIENT
  Age: 49 Year
  Sex: Male

DRUGS (3)
  1. TEMODAR [Suspect]
     Indication: PANCREATIC NEUROENDOCRINE TUMOUR
     Dosage: 280 MG, DAILYFOR SEVEN DAYS ON ALTERNATE WEEKS SEPARATED BY SEVEN DAYS OFF TREATMENT
     Route: 048
  2. TEMODAR [Suspect]
     Indication: METASTASES TO LIVER
  3. SULFAMETHOXAZOLE (+) TRIMETHOPRIM [Concomitant]
     Indication: ANTIBIOTIC PROPHYLAXIS

REACTIONS (2)
  - Polydipsia [Recovered/Resolved]
  - Polyuria [Recovered/Resolved]
